FAERS Safety Report 16792437 (Version 4)
Quarter: 2019Q4

REPORT INFORMATION
  Report Type: Report from Study
  Country: CN (occurrence: CN)
  Receive Date: 20190910
  Receipt Date: 20191118
  Transmission Date: 20200122
  Serious: Yes (Hospitalization)
  Sender: FDA-Public Use
  Company Number: CN-ELI_LILLY_AND_COMPANY-CN201909003027

PATIENT
  Age: 70 Year
  Sex: Male
  Weight: 55 kg

DRUGS (6)
  1. ONDANSETRON HYDROCHLORIDE. [Concomitant]
     Active Substance: ONDANSETRON HYDROCHLORIDE
     Indication: VOMITING
     Dosage: 8 MG, TID
     Route: 048
  2. SHENG XUE BAO HE JI [Concomitant]
     Indication: ANAEMIA
     Dosage: 15 ML, Q3W
     Route: 048
  3. PALONOSETRON. [Concomitant]
     Active Substance: PALONOSETRON HYDROCHLORIDE
     Indication: ANTIEMETIC SUPPORTIVE CARE
     Dosage: 0.25 MG, BID
     Route: 041
  4. PEMETREXED. [Suspect]
     Active Substance: PEMETREXED
     Indication: NON-SMALL CELL LUNG CANCER METASTATIC
     Dosage: 800 MG, CYCLICAL Q3W
     Route: 042
     Dates: start: 20190604, end: 20190809
  5. CARBOPLATIN. [Concomitant]
     Active Substance: CARBOPLATIN
     Indication: NON-SMALL CELL LUNG CANCER METASTATIC
     Dosage: 550 MG, CYCLICAL
     Dates: start: 20190604
  6. YI QI WEI XUE JIAO NANG [Concomitant]
     Indication: ANAEMIA
     Dosage: 16.2 G, TID
     Route: 048

REACTIONS (2)
  - Pneumonitis [Recovering/Resolving]
  - Anaemia [Recovering/Resolving]

NARRATIVE: CASE EVENT DATE: 20190828
